FAERS Safety Report 10060275 (Version 2)
Quarter: 2014Q4

REPORT INFORMATION
  Report Type: Spontaneous
  Country: US (occurrence: US)
  Receive Date: 20140404
  Receipt Date: 20141013
  Transmission Date: 20150528
  Serious: Yes (Death, Hospitalization, Disabling, Other)
  Sender: FDA-Public Use
  Company Number: US-MERCK-1404USA003405

PATIENT
  Sex: Male
  Weight: 93.42 kg

DRUGS (5)
  1. GLUCOVANCE [Concomitant]
     Active Substance: GLYBURIDE\METFORMIN HYDROCHLORIDE
     Indication: TYPE 2 DIABETES MELLITUS
     Dosage: 5/500 BID
  2. LANTUS [Concomitant]
     Active Substance: INSULIN GLARGINE
     Indication: TYPE 2 DIABETES MELLITUS
     Dosage: 20-35 IU, QD
     Dates: start: 20100118
  3. JANUVIA [Suspect]
     Active Substance: SITAGLIPTIN PHOSPHATE
     Indication: TYPE 2 DIABETES MELLITUS
     Dosage: 100 MG, QD
     Route: 048
     Dates: start: 20090817, end: 20111114
  4. BENICAR HCT [Concomitant]
     Active Substance: HYDROCHLOROTHIAZIDE\OLMESARTAN MEDOXOMIL
     Indication: HYPERTENSION
     Dosage: 1.25 DF, QD
  5. NEXIUM [Concomitant]
     Active Substance: ESOMEPRAZOLE MAGNESIUM
     Indication: GASTROOESOPHAGEAL REFLUX DISEASE
     Dosage: UNK

REACTIONS (18)
  - Malnutrition [Unknown]
  - Diabetes mellitus inadequate control [Not Recovered/Not Resolved]
  - Radiotherapy [Unknown]
  - Pancreatic calculus removal [Unknown]
  - Death [Fatal]
  - Bile duct stent insertion [Unknown]
  - Device occlusion [Unknown]
  - Anaemia [Unknown]
  - Metastases to liver [Unknown]
  - Pancreatic carcinoma metastatic [Not Recovered/Not Resolved]
  - Bile duct stent insertion [Unknown]
  - Jejunostomy [Unknown]
  - Biopsy liver [Unknown]
  - Hypercholesterolaemia [Unknown]
  - Gallbladder disorder [Unknown]
  - Chronic obstructive pulmonary disease [Not Recovered/Not Resolved]
  - Hypertension [Unknown]
  - Bile duct stent removal [Unknown]

NARRATIVE: CASE EVENT DATE: 20100118
